FAERS Safety Report 5238014-4 (Version None)
Quarter: 2007Q1

REPORT INFORMATION
  Report Type: 
  Country: None (occurrence: None)
  Receive Date: 20070214
  Receipt Date: 20070202
  Transmission Date: 20070707
  Serious: Yes (Other)
  Sender: FDA-Public Use
  Company Number: JP-PFIZER INC-2007002499

PATIENT
  Age: 75 Year
  Sex: Male

DRUGS (3)
  1. ZYVOX [Suspect]
     Indication: SKIN INFECTION
     Dosage: DAILY DOSE:1200MG
     Route: 042
  2. ZYVOX [Suspect]
     Indication: STAPHYLOCOCCAL INFECTION
  3. TIENAM [Suspect]

REACTIONS (1)
  - PSEUDOMEMBRANOUS COLITIS [None]
